FAERS Safety Report 10268407 (Version 2)
Quarter: 2014Q3

REPORT INFORMATION
  Report Type: Report from Study
  Country: US (occurrence: US)
  Receive Date: 20140630
  Receipt Date: 20140915
  Transmission Date: 20150326
  Serious: Yes (Other)
  Sender: FDA-Public Use
  Company Number: US-BRISTOL-MYERS SQUIBB COMPANY-21089248

PATIENT
  Age: 60 Year
  Sex: Female
  Weight: 86.62 kg

DRUGS (1)
  1. ORENCIA [Suspect]
     Active Substance: ABATACEPT
     Indication: RHEUMATOID ARTHRITIS
     Dosage: LAST DOSE OF ORENCIA ON 13JUN14:30AUG14?BAT NO:4A85292,EXP:NOV15

REACTIONS (5)
  - Muscle disorder [Unknown]
  - Respiratory tract infection [Unknown]
  - Cataract [Unknown]
  - Lacrimation increased [Unknown]
  - Eyelid ptosis [Unknown]
